FAERS Safety Report 22609645 (Version 1)
Quarter: 2023Q2

REPORT INFORMATION
  Report Type: Other
  Country: IN (occurrence: None)
  Receive Date: 20230616
  Receipt Date: 20230616
  Transmission Date: 20230722
  Serious: Yes (Other)
  Sender: FDA-Public Use
  Company Number: IN-ROCHE-3366622

PATIENT

DRUGS (1)
  1. BEVACIZUMAB [Suspect]
     Active Substance: BEVACIZUMAB
     Indication: Glioma
     Route: 065

REACTIONS (11)
  - Febrile neutropenia [Unknown]
  - Haemorrhage intracranial [Unknown]
  - Cerebrovascular accident [Unknown]
  - Neutropenia [Unknown]
  - Alanine aminotransferase increased [Unknown]
  - Aspartate aminotransferase increased [Unknown]
  - Dyslipidaemia [Unknown]
  - Proteinuria [Unknown]
  - Hypersensitivity [Unknown]
  - Hypertension [Unknown]
  - Fatigue [Unknown]
